FAERS Safety Report 6182188-8 (Version None)
Quarter: 2009Q2

REPORT INFORMATION
  Report Type: 
  Country: None (occurrence: None)
  Receive Date: 20090507
  Receipt Date: 20090428
  Transmission Date: 20091009
  Serious: Yes (Hospitalization)
  Sender: FDA-Public Use
  Company Number: PHHY2009RO16030

PATIENT
  Sex: Female

DRUGS (1)
  1. EXELON [Suspect]
     Indication: SENILE DEMENTIA
     Dosage: 9.5 MG/DAY
     Route: 062
     Dates: start: 20090103

REACTIONS (2)
  - PRURITUS GENERALISED [None]
  - PSYCHOMOTOR HYPERACTIVITY [None]
